FAERS Safety Report 5104479-1 (Version None)
Quarter: 2006Q3

REPORT INFORMATION
  Report Type: 
  Country: None (occurrence: None)
  Receive Date: 20060911
  Receipt Date: 20060825
  Transmission Date: 20061208
  Serious: Yes (Life-Threatening, Hospitalization)
  Sender: FDA-Public Use
  Company Number: JP-SHR-03-011210

PATIENT
  Age: 35 Year
  Sex: Female
  Weight: 50.7 kg

DRUGS (5)
  1. BETASERON [Suspect]
     Indication: RELAPSING-REMITTING MULTIPLE SCLEROSIS
     Dosage: 8 MIU,  EVERY 2D, SUBCUTANEOUS
     Route: 058
     Dates: start: 20030423, end: 20030524
  2. PREDNISOLONE [Concomitant]
  3. FAMOTIDINE [Concomitant]
  4. MAGNESIUM OXIDE [Concomitant]
  5. LAXOBERON (SODIUM PICOSULFATE) [Concomitant]

REACTIONS (4)
  - CLONIC CONVULSION [None]
  - LOSS OF CONSCIOUSNESS [None]
  - PNEUMONIA ASPIRATION [None]
  - STATUS EPILEPTICUS [None]
